FAERS Safety Report 12450587 (Version 1)
Quarter: 2016Q2

REPORT INFORMATION
  Report Type: Spontaneous
  Country: US (occurrence: None)
  Receive Date: 20160608
  Receipt Date: 20160608
  Transmission Date: 20160815
  Serious: Yes (Life-Threatening, Disabling)
  Sender: FDA-Public Use
  Company Number: None

PATIENT
  Age: 60 Year
  Sex: Female
  Weight: 114.31 kg

DRUGS (8)
  1. VITAMIN D [Concomitant]
     Active Substance: CHOLECALCIFEROL
  2. MULTIVITAMIN [Concomitant]
     Active Substance: VITAMINS
  3. ARMOR FOR THYROID [Concomitant]
  4. MONTEKULAST [Concomitant]
  5. ZANTAC [Concomitant]
     Active Substance: RANITIDINE HYDROCHLORIDE
  6. FLONASE [Concomitant]
     Active Substance: FLUTICASONE PROPIONATE
  7. METROPRONOL [Concomitant]
  8. VALSARTAN 80 MG, 80 MG [Suspect]
     Active Substance: VALSARTAN
     Indication: BLOOD PRESSURE MEASUREMENT
     Route: 048
     Dates: start: 20160526, end: 20160528

REACTIONS (8)
  - Palpitations [None]
  - Local swelling [None]
  - Herpes zoster [None]
  - Musculoskeletal stiffness [None]
  - Ageusia [None]
  - Anosmia [None]
  - Rash [None]
  - Headache [None]

NARRATIVE: CASE EVENT DATE: 20160526
